FAERS Safety Report 8409865-X (Version None)
Quarter: 2012Q2

REPORT INFORMATION
  Report Type: 
  Country: None (occurrence: None)
  Receive Date: 20120529
  Receipt Date: 20120515
  Transmission Date: 20120825
  Serious: Yes (Other)
  Sender: FDA-Public Use
  Company Number: 2012SP026894

PATIENT
  Sex: Male

DRUGS (1)
  1. CLARITIN-D 24 HOUR [Suspect]
     Indication: SWOLLEN TONGUE
     Dosage: 10 MG; ONCE; PO
     Route: 048

REACTIONS (1)
  - ANGIOEDEMA [None]
